FAERS Safety Report 23341623 (Version 1)
Quarter: 2023Q4

REPORT INFORMATION
  Report Type: Spontaneous
  Country: US (occurrence: None)
  Receive Date: 20231226
  Receipt Date: 20231226
  Transmission Date: 20240110
  Serious: Yes (Life-Threatening, Hospitalization)
  Sender: FDA-Public Use
  Company Number: None

PATIENT
  Age: 76 Year
  Sex: Male
  Weight: 90 kg

DRUGS (3)
  1. DOFETILIDE [Suspect]
     Active Substance: DOFETILIDE
     Dosage: 125 MG BID PO
     Route: 048
     Dates: start: 20230111, end: 20231129
  2. AMIODARONE HYDROCHLORIDE [Suspect]
     Active Substance: AMIODARONE HYDROCHLORIDE
     Dosage: 360 MG ONCE IV
     Route: 042
     Dates: start: 20231129, end: 20231129
  3. ELIQUIS [Suspect]
     Active Substance: APIXABAN

REACTIONS (7)
  - Bradycardia [None]
  - Syncope [None]
  - Blood pressure increased [None]
  - Haemoglobin decreased [None]
  - Electrocardiogram QT prolonged [None]
  - Tachycardia [None]
  - Torsade de pointes [None]

NARRATIVE: CASE EVENT DATE: 20231129
